FAERS Safety Report 7513850-X (Version None)
Quarter: 2011Q2

REPORT INFORMATION
  Report Type: 
  Country: None (occurrence: None)
  Receive Date: 20110531
  Receipt Date: 20110519
  Transmission Date: 20111010
  Serious: Yes (Other)
  Sender: FDA-Public Use
  Company Number: PHHY2011US43876

PATIENT

DRUGS (2)
  1. LOPRESSOR [Suspect]
     Dosage: UNK
     Dates: start: 20110511
  2. DRONEDARONE HCL [Suspect]
     Dosage: 400 MG, UNK
     Dates: start: 20110511, end: 20110512

REACTIONS (1)
  - BLOOD CREATININE INCREASED [None]
